FAERS Safety Report 25779001 (Version 2)
Quarter: 2025Q3

REPORT INFORMATION
  Report Type: Spontaneous
  Country: US (occurrence: US)
  Receive Date: 20250909
  Receipt Date: 20250918
  Transmission Date: 20251021
  Serious: No
  Sender: ELI LILLY AND COMPANY
  Company Number: US-ELI_LILLY_AND_COMPANY-US202509007832

PATIENT
  Age: 78 Year
  Sex: Female

DRUGS (12)
  1. MOUNJARO [Suspect]
     Active Substance: TIRZEPATIDE
     Indication: Glycosylated haemoglobin
     Dosage: 2.5 MG, WEEKLY (1/W)
     Route: 065
     Dates: start: 20250908
  2. MOUNJARO [Suspect]
     Active Substance: TIRZEPATIDE
     Indication: Glycosylated haemoglobin
     Dosage: 2.5 MG, WEEKLY (1/W)
     Route: 065
     Dates: start: 20250908
  3. MOUNJARO [Suspect]
     Active Substance: TIRZEPATIDE
     Indication: Glycosylated haemoglobin
     Dosage: 2.5 MG, WEEKLY (1/W)
     Route: 065
     Dates: start: 20250908
  4. MOUNJARO [Suspect]
     Active Substance: TIRZEPATIDE
     Indication: Glycosylated haemoglobin
     Dosage: 2.5 MG, WEEKLY (1/W)
     Route: 065
     Dates: start: 20250908
  5. MOUNJARO [Suspect]
     Active Substance: TIRZEPATIDE
     Indication: Glucose tolerance impaired
  6. MOUNJARO [Suspect]
     Active Substance: TIRZEPATIDE
     Indication: Glucose tolerance impaired
  7. MOUNJARO [Suspect]
     Active Substance: TIRZEPATIDE
     Indication: Glucose tolerance impaired
  8. MOUNJARO [Suspect]
     Active Substance: TIRZEPATIDE
     Indication: Glucose tolerance impaired
  9. MOUNJARO [Suspect]
     Active Substance: TIRZEPATIDE
     Indication: Metabolic dysfunction-associated liver disease
  10. MOUNJARO [Suspect]
     Active Substance: TIRZEPATIDE
     Indication: Metabolic dysfunction-associated liver disease
  11. MOUNJARO [Suspect]
     Active Substance: TIRZEPATIDE
     Indication: Metabolic dysfunction-associated liver disease
  12. MOUNJARO [Suspect]
     Active Substance: TIRZEPATIDE
     Indication: Metabolic dysfunction-associated liver disease

REACTIONS (6)
  - Accidental underdose [Unknown]
  - Off label use [Unknown]
  - Nasal congestion [Unknown]
  - Paranasal sinus hypersecretion [Recovering/Resolving]
  - Nausea [Recovered/Resolved]
  - Constipation [Unknown]

NARRATIVE: CASE EVENT DATE: 20250908
